FAERS Safety Report 7623124-4 (Version None)
Quarter: 2011Q3

REPORT INFORMATION
  Report Type: 
  Country: None (occurrence: None)
  Receive Date: 20110720
  Receipt Date: 20110705
  Transmission Date: 20111222
  Serious: Yes (Other)
  Sender: FDA-Public Use
  Company Number: PHHY2011AU48096

PATIENT
  Age: 77 Year
  Sex: Male

DRUGS (10)
  1. LIPITOR [Concomitant]
  2. ASPIRIN AND DIPYRIDAMOLE [Concomitant]
     Dosage: UNK UKN, UNK
  3. SERETIDE [Concomitant]
     Dosage: UNK UKN, UNK
  4. ASMOL [Concomitant]
     Dosage: 100 UG
  5. ATROVENT [Concomitant]
     Dosage: 500 UG, UNK
  6. SPIRIVA [Concomitant]
     Dosage: 18 UG, UNK
  7. AVAPRO HCT [Concomitant]
     Dosage: UNK UKN, UNK
  8. ZOLEDRONOC ACID [Suspect]
     Indication: OSTEOPOROSIS
     Dosage: 5 MG
     Route: 042
     Dates: start: 20110531, end: 20110531
  9. BISOLVON [Concomitant]
     Dosage: 8 MG, UNK
  10. PANAMAX [Concomitant]
     Dosage: 500 MG

REACTIONS (8)
  - DEHYDRATION [None]
  - CHILLS [None]
  - DIZZINESS [None]
  - NIGHT SWEATS [None]
  - URINARY INCONTINENCE [None]
  - FAECAL INCONTINENCE [None]
  - HYPOTENSION [None]
  - PYREXIA [None]
